FAERS Safety Report 7582607-6 (Version None)
Quarter: 2011Q2

REPORT INFORMATION
  Report Type: 
  Country: None (occurrence: None)
  Receive Date: 20110630
  Receipt Date: 20110617
  Transmission Date: 20111010
  Serious: Yes (Life-Threatening, Hospitalization)
  Sender: FDA-Public Use
  Company Number: JP-JNJFOC-20110104225

PATIENT
  Age: 60 Year
  Sex: Female
  Weight: 50 kg

DRUGS (16)
  1. RHEUMATREX [Suspect]
     Indication: RHEUMATOID ARTHRITIS
     Route: 048
     Dates: end: 20101206
  2. PREDNISOLONE [Suspect]
     Indication: PRODUCT USED FOR UNKNOWN INDICATION
     Route: 048
     Dates: start: 20100910, end: 20101104
  3. ACTONEL [Concomitant]
     Route: 048
  4. CELECOXIB [Concomitant]
     Route: 048
  5. FOLIC ACID [Concomitant]
     Route: 048
  6. REMICADE [Suspect]
     Indication: RHEUMATOID ARTHRITIS
     Route: 042
     Dates: start: 20101105
  7. REMICADE [Suspect]
     Route: 042
     Dates: start: 20100526
  8. PREDNISOLONE [Suspect]
     Route: 048
     Dates: start: 20101105, end: 20101209
  9. REMICADE [Suspect]
     Route: 042
     Dates: start: 20100910
  10. REMICADE [Suspect]
     Route: 042
     Dates: start: 20100716
  11. REMICADE [Suspect]
     Route: 042
     Dates: start: 20100414
  12. PREDNISOLONE [Suspect]
     Route: 048
     Dates: start: 20100716, end: 20100909
  13. PREDNISOLONE [Suspect]
     Route: 048
     Dates: start: 20101210, end: 20101212
  14. REMICADE [Suspect]
     Route: 042
  15. PREDNISOLONE [Suspect]
     Route: 048
  16. STOGAR [Concomitant]
     Route: 048

REACTIONS (4)
  - HEPATIC FUNCTION ABNORMAL [None]
  - ASCITES [None]
  - PULMONARY TUBERCULOSIS [None]
  - PNEUMOCYSTIS TEST POSITIVE [None]
